FAERS Safety Report 8106749-1 (Version None)
Quarter: 2012Q1

REPORT INFORMATION
  Report Type: 
  Country: None (occurrence: None)
  Receive Date: 20120130
  Receipt Date: 20120118
  Transmission Date: 20120608
  Serious: Yes (Other)
  Sender: FDA-Public Use
  Company Number: US-1190002

PATIENT
  Age: 64 Year
  Sex: Female

DRUGS (8)
  1. PAROXETINE [Concomitant]
  2. TIMOLOL MALEATE [Concomitant]
  3. DUREZOL [Suspect]
     Indication: CATARACT OPERATION
     Dosage: (OPHTHALMIC)
     Route: 047
     Dates: start: 20111118, end: 20111125
  4. ESTROVEN MULTI-VITAMIN [Concomitant]
  5. BRIMONIDINE TARTRATE [Concomitant]
  6. PRED MILD [Suspect]
     Indication: PREOPERATIVE CARE
     Dosage: (OPHTHALMIC)
     Route: 047
  7. BROMDAY [Suspect]
     Indication: CATARACT OPERATION
     Dosage: (1 GTT QD OD OPHTHALMIC)
     Route: 047
     Dates: start: 20111118, end: 20111125
  8. TRAVATAN Z [Concomitant]

REACTIONS (3)
  - AMNIOTIC MEMBRANE GRAFT [None]
  - CORNEAL DISORDER [None]
  - ULCERATIVE KERATITIS [None]
